FAERS Safety Report 8174558-3 (Version None)
Quarter: 2012Q1

REPORT INFORMATION
  Report Type: 
  Country: None (occurrence: None)
  Receive Date: 20120229
  Receipt Date: 20120223
  Transmission Date: 20120608
  Serious: Yes (Disabling)
  Sender: FDA-Public Use
  Company Number: US-PFIZER INC-2012048917

PATIENT
  Sex: Female
  Weight: 91.61 kg

DRUGS (5)
  1. NEURONTIN [Concomitant]
     Dosage: UNK
  2. ZOLOFT [Concomitant]
     Dosage: UNK
  3. CELEBREX [Suspect]
     Indication: ARTHRITIS
     Dosage: 200 MG, DAILY
  4. NORTRIPTYLINE [Concomitant]
     Dosage: UNK
  5. ACTIGALL [Concomitant]
     Dosage: UNK

REACTIONS (6)
  - BONE SWELLING [None]
  - OEDEMA PERIPHERAL [None]
  - JOINT SWELLING [None]
  - BLOOD ALKALINE PHOSPHATASE INCREASED [None]
  - ABASIA [None]
  - PAIN [None]
